FAERS Safety Report 10064316 (Version 1)
Quarter: 2014Q2

REPORT INFORMATION
  Report Type: Spontaneous
  Country: US (occurrence: None)
  Receive Date: 20140407
  Receipt Date: 20140407
  Transmission Date: 20141212
  Serious: Yes (Disabling)
  Sender: FDA-Public Use
  Company Number: None

PATIENT
  Age: 62 Year
  Sex: Female
  Weight: 47.63 kg

DRUGS (1)
  1. TRAVATAN [Suspect]
     Indication: NORMAL TENSION GLAUCOMA
     Dosage: AT NIGHT, AT BEDTIME
     Dates: start: 20130103, end: 20130503

REACTIONS (6)
  - Eczema [None]
  - Dyspnoea [None]
  - Palpitations [None]
  - Chest discomfort [None]
  - Spasmodic dysphonia [None]
  - Tremor [None]
